FAERS Safety Report 7414724-5 (Version None)
Quarter: 2011Q2

REPORT INFORMATION
  Report Type: 
  Country: None (occurrence: None)
  Receive Date: 20110414
  Receipt Date: 20110225
  Transmission Date: 20111010
  Serious: Yes (Death, Hospitalization, Other)
  Sender: FDA-Public Use
  Company Number: US-BAYER-200918767NA

PATIENT
  Age: 75 Year
  Sex: Female
  Weight: 49.887 kg

DRUGS (16)
  1. TRASYLOL [Suspect]
     Indication: AORTIC VALVE REPLACEMENT
  2. DOPAMINE HCL [Concomitant]
     Route: 042
  3. PREDNISONE [Concomitant]
     Route: 048
  4. ADVAIR HFA [Concomitant]
     Dosage: 100/50 TWICE PER DAY
  5. LIDOCAINE [Concomitant]
     Route: 042
  6. BLOOD AND RELATED PRODUCTS [Concomitant]
     Dosage: 800 ML, UNK
     Dates: start: 20050228
  7. ALTACE [Concomitant]
     Dosage: 5 G, QD
     Route: 048
  8. INSULIN [Concomitant]
     Dosage: UNK
     Route: 042
     Dates: start: 20050228, end: 20050228
  9. PROTAMINE SULFATE [Concomitant]
     Dosage: UNK
     Route: 042
     Dates: start: 20050228, end: 20050228
  10. SODIUM BICARBONATE [Concomitant]
     Dosage: UNK
     Route: 042
     Dates: start: 20050228, end: 20050228
  11. TRASYLOL [Suspect]
     Indication: MITRAL VALVE REPLACEMENT
  12. HEPARIN [Concomitant]
     Route: 042
  13. CALCIUM CHLORIDE [Concomitant]
     Dosage: UNK
     Route: 042
     Dates: start: 20050228, end: 20050228
  14. MANNITOL [Concomitant]
     Dosage: UNK
     Route: 042
     Dates: start: 20050228, end: 20050228
  15. TRASYLOL [Suspect]
     Indication: CORONARY ARTERY BYPASS
     Dosage: 200 ML PUMP PRIME
     Route: 042
     Dates: start: 20050228
  16. VALIUM [Concomitant]
     Route: 042

REACTIONS (11)
  - MULTI-ORGAN FAILURE [None]
  - PAIN [None]
  - DEATH [None]
  - RENAL FAILURE [None]
  - RENAL IMPAIRMENT [None]
  - RENAL INJURY [None]
  - EMOTIONAL DISTRESS [None]
  - ANXIETY [None]
  - STRESS [None]
  - UNEVALUABLE EVENT [None]
  - FEAR [None]
